FAERS Safety Report 6179855-9 (Version None)
Quarter: 2009Q2

REPORT INFORMATION
  Report Type: 
  Country: None (occurrence: None)
  Receive Date: 20090505
  Receipt Date: 20090505
  Transmission Date: 20091009
  Serious: No
  Sender: FDA-Public Use
  Company Number: US-B.I. PHARMACEUTICALS,INC./RIDGEFIELD-2009-BP-05345BP

PATIENT
  Sex: Male

DRUGS (4)
  1. ZANTAC 75 [Suspect]
     Indication: DYSPEPSIA
     Dosage: 150MG
     Route: 048
     Dates: start: 20070101
  2. MEDICAL MARIJUANA [Concomitant]
     Indication: MIGRAINE
  3. MEDICAL MARIJUANA [Concomitant]
     Indication: INSOMNIA
  4. MEDICAL MARIJUANA [Concomitant]
     Indication: ARTHRITIS

REACTIONS (1)
  - DRUG INEFFECTIVE [None]
